FAERS Safety Report 9042442 (Version 1)
Quarter: 2013Q1

REPORT INFORMATION
  Report Type: Report from Study
  Country: US (occurrence: US)
  Receive Date: 20130129
  Receipt Date: 20130129
  Transmission Date: 20140127
  Serious: No
  Sender: FDA-Public Use
  Company Number: US-ABBOTT-12P-163-0909698-00

PATIENT
  Age: 28 Year
  Sex: Female

DRUGS (8)
  1. HUMIRA 40 MG/0.8 ML PEN [Suspect]
     Indication: PSORIATIC ARTHROPATHY
     Dates: start: 201201
  2. HUMIRA 40 MG/0.8 ML PEN [Suspect]
     Indication: PSORIASIS
  3. METHOTREXATE [Concomitant]
     Indication: PRODUCT USED FOR UNKNOWN INDICATION
  4. DIAZEPAM [Concomitant]
     Indication: ANXIETY
  5. DIAZEPAM [Concomitant]
     Indication: NAUSEA
  6. OXYCODONE [Concomitant]
     Indication: PAIN
  7. AMITRIPTYLINE [Concomitant]
     Indication: INSOMNIA
     Dosage: AT BEDTIME
  8. GABAPENTIN [Concomitant]
     Indication: NEUROPATHY PERIPHERAL

REACTIONS (12)
  - Hunger [Not Recovered/Not Resolved]
  - Pyrexia [Not Recovered/Not Resolved]
  - Dysgeusia [Not Recovered/Not Resolved]
  - Weight decreased [Not Recovered/Not Resolved]
  - Chest discomfort [Unknown]
  - Vomiting [Unknown]
  - Bronchitis [Unknown]
  - Sinusitis [Unknown]
  - Oral fungal infection [Not Recovered/Not Resolved]
  - Vulvovaginal mycotic infection [Not Recovered/Not Resolved]
  - Feeling cold [Not Recovered/Not Resolved]
  - Bone pain [Not Recovered/Not Resolved]
